FAERS Safety Report 5244834-2 (Version None)
Quarter: 2007Q1

REPORT INFORMATION
  Report Type: 
  Country: None (occurrence: None)
  Receive Date: 20070216
  Receipt Date: 20070103
  Transmission Date: 20070707
  Serious: Yes (Death, Other)
  Sender: FDA-Public Use
  Company Number: SGORI-S-20070004

PATIENT
  Age: 50 Year
  Sex: Female

DRUGS (2)
  1. NAVELBINE [Suspect]
     Indication: METASTASES TO SPINE
     Dosage: 40 MG, IV
     Route: 042
  2. CISPLATIN [Suspect]
     Indication: METASTASES TO SPINE
     Dosage: 60 MG

REACTIONS (4)
  - BRAIN DAMAGE [None]
  - CEREBRAL INFARCTION [None]
  - CEREBRAL ISCHAEMIA [None]
  - COMA [None]
